FAERS Safety Report 20465933 (Version 1)
Quarter: 2022Q1

REPORT INFORMATION
  Report Type: Spontaneous
  Country: US (occurrence: US)
  Receive Date: 20220212
  Receipt Date: 20220212
  Transmission Date: 20220423
  Serious: Yes (Hospitalization, Other)
  Sender: FDA-Public Use
  Company Number: US-SAMSUNG BIOEPIS-SB-2022-02956

PATIENT
  Age: 42 Year
  Sex: Female

DRUGS (2)
  1. INFLIXIMAB [Suspect]
     Active Substance: INFLIXIMAB
     Indication: Ankylosing spondylitis
     Route: 065
  2. METHOTREXATE [Concomitant]
     Active Substance: METHOTREXATE
     Indication: Ankylosing spondylitis
     Route: 065

REACTIONS (7)
  - Haemophagocytic lymphohistiocytosis [Recovering/Resolving]
  - Histoplasmosis disseminated [Recovering/Resolving]
  - Renal failure [Recovered/Resolved]
  - Lactic acidosis [Recovering/Resolving]
  - Hypoxia [Recovering/Resolving]
  - Haemodynamic instability [Recovering/Resolving]
  - Immunodeficiency [Unknown]
